FAERS Safety Report 16274722 (Version 1)
Quarter: 2019Q2

REPORT INFORMATION
  Report Type: Spontaneous
  Country: JP (occurrence: JP)
  Receive Date: 20190506
  Receipt Date: 20190506
  Transmission Date: 20190711
  Serious: Yes (Death, Life-Threatening, Hospitalization, Other)
  Sender: FDA-Public Use
  Company Number: JP-STRIDES ARCOLAB LIMITED-2019SP003717

PATIENT
  Age: 59 Year
  Sex: Male

DRUGS (21)
  1. TACROLIMUS. [Suspect]
     Active Substance: TACROLIMUS
     Dosage: 4 MG, UNKNOWN
     Route: 065
     Dates: start: 201710, end: 201711
  2. CICLOSPORIN [Suspect]
     Active Substance: CYCLOSPORINE
     Dosage: 50 MG, UNKNOWN
     Route: 065
     Dates: start: 201712, end: 201712
  3. METHYLPREDNISOLONE. [Suspect]
     Active Substance: METHYLPREDNISOLONE
     Dosage: 20 MG, UNKNOWN
     Route: 065
     Dates: start: 201710, end: 201710
  4. CICLOSPORIN [Suspect]
     Active Substance: CYCLOSPORINE
     Dosage: 150 MG, UNKNOWN
     Route: 065
     Dates: start: 201712, end: 201712
  5. PREDNISOLONE. [Suspect]
     Active Substance: PREDNISOLONE
     Indication: RENAL TRANSPLANT
     Dosage: 15 MG, UNKNOWN
     Route: 065
  6. CICLOSPORIN [Suspect]
     Active Substance: CYCLOSPORINE
     Indication: RENAL TRANSPLANT
     Dosage: 250 MG, UNK
     Route: 065
     Dates: start: 201711, end: 201711
  7. CICLOSPORIN [Suspect]
     Active Substance: CYCLOSPORINE
     Dosage: 100 MG, UNKNOWN
     Route: 065
     Dates: start: 201712
  8. METHYLPREDNISOLONE. [Suspect]
     Active Substance: METHYLPREDNISOLONE
     Indication: RENAL TRANSPLANT
     Dosage: 4 MG, UNKNOWN
     Route: 065
     Dates: start: 201711, end: 201712
  9. METHYLPREDNISOLONE. [Suspect]
     Active Substance: METHYLPREDNISOLONE
     Dosage: 16 MG, UNKNOWN
     Route: 065
     Dates: start: 201710, end: 201710
  10. METHYLPREDNISOLONE. [Suspect]
     Active Substance: METHYLPREDNISOLONE
     Dosage: 8 MG, UNKNOWN
     Route: 065
     Dates: start: 201711, end: 201711
  11. TACROLIMUS. [Suspect]
     Active Substance: TACROLIMUS
     Indication: RENAL TRANSPLANT
     Dosage: 7 MG, UNKNOWN
     Route: 065
     Dates: start: 20171018, end: 201710
  12. MYCOPHENOLATE MOFETIL. [Suspect]
     Active Substance: MYCOPHENOLATE MOFETIL
     Indication: RENAL TRANSPLANT
     Dosage: 1000 MG, UNKNOWN
     Route: 065
     Dates: start: 201711
  13. MYCOPHENOLATE MOFETIL. [Suspect]
     Active Substance: MYCOPHENOLATE MOFETIL
     Dosage: 2000 MG, UNKNOWN
     Route: 065
     Dates: start: 20171018, end: 201711
  14. CICLOSPORIN [Suspect]
     Active Substance: CYCLOSPORINE
     Dosage: 200 MG, UNKNOWN
     Route: 065
     Dates: start: 201711, end: 201712
  15. METHYLPREDNISOLONE. [Suspect]
     Active Substance: METHYLPREDNISOLONE
     Dosage: 12 MG, UNKNOWN
     Route: 065
     Dates: start: 201710, end: 201711
  16. METHYLPREDNISOLONE. [Suspect]
     Active Substance: METHYLPREDNISOLONE
     Dosage: 250 MG, UNKNOWN
     Route: 065
     Dates: start: 20171018, end: 201710
  17. MYCOPHENOLATE MOFETIL. [Suspect]
     Active Substance: MYCOPHENOLATE MOFETIL
     Dosage: 1500 MG, UNKNOWN
     Route: 065
     Dates: start: 201711, end: 201711
  18. BASILIXIMAB [Suspect]
     Active Substance: BASILIXIMAB
     Indication: RENAL TRANSPLANT
     Dosage: 20 MG, UNKNOWN
     Route: 065
     Dates: start: 20171018, end: 201710
  19. PREDNISOLONE. [Suspect]
     Active Substance: PREDNISOLONE
     Dosage: 20 MG, UNKNOWN
     Route: 065
     Dates: start: 201712
  20. PREDNISOLONE. [Suspect]
     Active Substance: PREDNISOLONE
     Dosage: 35 MG, UNKNOWN
     Route: 065
     Dates: start: 201712, end: 201712
  21. CICLOSPORIN [Suspect]
     Active Substance: CYCLOSPORINE
     Dosage: 100 MG, UNKNOWN
     Route: 065
     Dates: start: 201712, end: 201712

REACTIONS (5)
  - Cerebral infarction [Unknown]
  - Hepatitis cholestatic [Not Recovered/Not Resolved]
  - Hepatic failure [Fatal]
  - Atrial fibrillation [Unknown]
  - Gastric ulcer haemorrhage [Fatal]

NARRATIVE: CASE EVENT DATE: 2017
